FAERS Safety Report 9268436 (Version 1)
Quarter: 2013Q2

REPORT INFORMATION
  Report Type: Spontaneous
  Country: US (occurrence: US)
  Receive Date: 20130502
  Receipt Date: 20130502
  Transmission Date: 20140414
  Serious: No
  Sender: FDA-Public Use
  Company Number: US-ALEXION-A201202446

PATIENT
  Sex: Female
  Weight: 75 kg

DRUGS (29)
  1. SOLIRIS 300MG [Suspect]
     Indication: COLD TYPE HAEMOLYTIC ANAEMIA
     Dosage: 900 MG, Q2W
     Route: 042
     Dates: start: 201104
  2. SOLIRIS 300MG [Suspect]
     Indication: OFF LABEL USE
  3. VITAMIN D [Concomitant]
     Indication: VITAMIN D DECREASED
     Dosage: 2000 IU, QD
  4. CELLCEPT [Concomitant]
     Indication: ANAEMIA
     Dosage: 500 MG, BID
  5. FOLIC ACID [Concomitant]
     Indication: ANAEMIA
     Dosage: 1 MG, QD
  6. ARANESP [Concomitant]
     Indication: ANAEMIA
     Dosage: 500 ?G, QOW
  7. LANTUS [Concomitant]
     Indication: DIABETES MELLITUS
     Dosage: 15 IU, QD AT BEDTIME
  8. NOVOLOG [Concomitant]
     Indication: DIABETES MELLITUS
     Dosage: SLIDING SCALE W/MEALS PRN
  9. NEXIUM [Concomitant]
     Indication: GASTROINTESTINAL DISORDER
     Dosage: 40 MG, BID
  10. PROMETHAZINE [Concomitant]
     Indication: GASTROINTESTINAL DISORDER
     Dosage: 25 MG, TID
  11. COLACE [Concomitant]
     Indication: GASTROINTESTINAL DISORDER
     Dosage: BID
  12. GLYCOLAX [Concomitant]
     Indication: GASTROINTESTINAL DISORDER
     Dosage: 1 CAPFUL DAILY
  13. THEOPHYLLINE [Concomitant]
     Indication: CHRONIC OBSTRUCTIVE PULMONARY DISEASE
     Dosage: 300 MG, BID
  14. ALLFEN [Concomitant]
     Indication: CHRONIC OBSTRUCTIVE PULMONARY DISEASE
     Dosage: 1000 MG, BID
  15. SPIRIVA [Concomitant]
     Indication: CHRONIC OBSTRUCTIVE PULMONARY DISEASE
     Dosage: 18 MG, QD
  16. ADVAIR [Concomitant]
     Indication: CHRONIC OBSTRUCTIVE PULMONARY DISEASE
     Dosage: 250/50 BID
  17. ALBUTEROL [Concomitant]
     Indication: CHRONIC OBSTRUCTIVE PULMONARY DISEASE
     Dosage: UNK
  18. OXYGEN [Concomitant]
     Indication: CHRONIC OBSTRUCTIVE PULMONARY DISEASE
     Dosage: UNK
  19. LOPRESSOR [Concomitant]
     Indication: HYPERTENSION
     Dosage: 25 MG, BID
  20. K-DUR [Concomitant]
     Indication: CARDIOVASCULAR EVENT PROPHYLAXIS
     Dosage: 20 MG, BID
  21. ASA [Concomitant]
     Indication: CARDIOVASCULAR EVENT PROPHYLAXIS
     Dosage: 80 MG, QD
  22. LASIX [Concomitant]
     Indication: HYPERTENSION
     Dosage: 80 MG, QD
  23. LASIX [Concomitant]
     Indication: CARDIOVASCULAR EVENT PROPHYLAXIS
  24. LIPITOR [Concomitant]
     Indication: HYPERLIPIDAEMIA
     Dosage: 40 MG, QD AT HOUR OF SLEEP
  25. TRICOR [Concomitant]
     Indication: HYPERLIPIDAEMIA
     Dosage: 145 MG, QD AT HOUR OF SLEEP
  26. PAXIL [Concomitant]
     Indication: ANXIETY
     Dosage: 90 MG, QD AT HOUR OF SLEEP
  27. XANAX [Concomitant]
     Indication: ANXIETY
     Dosage: 0.5 MG, TID
  28. METHADONE [Concomitant]
     Indication: PAIN
     Dosage: 5 MG, BID
  29. FLEXERIL [Concomitant]
     Dosage: TID

REACTIONS (1)
  - Impaired gastric emptying [Recovering/Resolving]
